FAERS Safety Report 13487380 (Version 1)
Quarter: 2017Q2

REPORT INFORMATION
  Report Type: Spontaneous
  Country: US (occurrence: US)
  Receive Date: 20170426
  Receipt Date: 20170426
  Transmission Date: 20170830
  Serious: No
  Sender: FDA-Public Use
  Company Number: US-ALKERMES INC.-ALK-2016-002669

PATIENT
  Age: 25 Year
  Sex: Female
  Weight: 67.57 kg

DRUGS (1)
  1. VIVITROL [Suspect]
     Active Substance: NALTREXONE
     Indication: DRUG USE DISORDER
     Dosage: 380 MG, QMO
     Route: 030
     Dates: start: 20160912

REACTIONS (10)
  - Diarrhoea [Unknown]
  - Asthenia [Unknown]
  - Withdrawal syndrome [Unknown]
  - Vomiting [Unknown]
  - Restless legs syndrome [Unknown]
  - Hypersomnia [Unknown]
  - Anxiety [Unknown]
  - Abdominal pain upper [Unknown]
  - Feeling abnormal [Unknown]
  - Decreased appetite [Unknown]

NARRATIVE: CASE EVENT DATE: 201609
